FAERS Safety Report 23211112 (Version 1)
Quarter: 2023Q4

REPORT INFORMATION
  Report Type: Spontaneous
  Country: US (occurrence: None)
  Receive Date: 20231120
  Receipt Date: 20231120
  Transmission Date: 20240110
  Serious: Yes (Other)
  Sender: FDA-Public Use
  Company Number: None

PATIENT
  Age: 89 Year
  Sex: Male

DRUGS (7)
  1. POTASSIUM CHLORIDE K-42 [Suspect]
     Active Substance: POTASSIUM CHLORIDE K-42
     Indication: Hypokalaemia
     Dosage: OTHER QUANTITY : 1 TABLET(S);?FREQUENCY : EVERY 12 HOURS;?
     Route: 048
     Dates: end: 20230601
  2. TORSEMIDE [Concomitant]
     Active Substance: TORSEMIDE
  3. METOPROLOL [Concomitant]
     Active Substance: METOPROLOL
  4. ROSUVASTATIN [Concomitant]
     Active Substance: ROSUVASTATIN
  5. ELIQUIS [Concomitant]
     Active Substance: APIXABAN
  6. MULTAQ [Concomitant]
     Active Substance: DRONEDARONE
  7. PROTONIX [Concomitant]
     Active Substance: PANTOPRAZOLE SODIUM

REACTIONS (5)
  - Product size issue [None]
  - Product use complaint [None]
  - Abdominal distension [None]
  - Eosinophilic oesophagitis [None]
  - Hiatus hernia [None]

NARRATIVE: CASE EVENT DATE: 20230101
